FAERS Safety Report 9469584 (Version 3)
Quarter: 2015Q1

REPORT INFORMATION
  Report Type: Spontaneous
  Country: BR (occurrence: BR)
  Receive Date: 20130822
  Receipt Date: 20150316
  Transmission Date: 20150721
  Serious: Yes (Other)
  Sender: FDA-Public Use
  Company Number: BR-AMGEN-BRASP2013058276

PATIENT
  Age: 58 Year
  Sex: Female
  Weight: 67 kg

DRUGS (8)
  1. ARCOXIA [Concomitant]
     Active Substance: ETORICOXIB
     Indication: BLOOD PRESSURE ABNORMAL
  2. ALENIA                             /01479302/ [Concomitant]
     Dosage: 1 TABLET (12 PLUS 400MG), DAILY
     Dates: start: 2010
  3. ARCOXIA [Concomitant]
     Active Substance: ETORICOXIB
     Indication: PAIN
     Dosage: ONE TABLET (90 MG), DAILY
     Dates: start: 2005
  4. TYLEX                              /00020001/ [Concomitant]
     Indication: PAIN
     Dosage: ONE TABLET (30 MG), DAILY, AS NEEDED (WHEN PRESENTING WITH PAIN)
     Dates: start: 2003
  5. DIOVAN [Concomitant]
     Active Substance: VALSARTAN
     Indication: HYPERTENSION
     Dosage: UNK
  6. LOSARTAN [Concomitant]
     Active Substance: LOSARTAN
     Indication: HYPERTENSION
     Dosage: UNK
     Dates: start: 2000
  7. OLCADIL [Concomitant]
     Active Substance: CLOXAZOLAM
     Dosage: ONE TABLET (2 MG), DAILY
     Dates: start: 2005
  8. ENBREL [Suspect]
     Active Substance: ETANERCEPT
     Indication: RHEUMATOID ARTHRITIS
     Dosage: 25MG 2X/WEEK
     Route: 058
     Dates: start: 20071111, end: 201309

REACTIONS (4)
  - Nail disorder [Unknown]
  - Deafness [Not Recovered/Not Resolved]
  - Depression [Recovered/Resolved]
  - Alopecia [Recovered/Resolved]

NARRATIVE: CASE EVENT DATE: 2008
